FAERS Safety Report 21411187 (Version 1)
Quarter: 2022Q4

REPORT INFORMATION
  Report Type: Spontaneous
  Country: CN (occurrence: CN)
  Receive Date: 20221005
  Receipt Date: 20221005
  Transmission Date: 20230113
  Serious: Yes (Hospitalization, Other)
  Sender: FDA-Public Use
  Company Number: CN-ANIPHARMA-2022-CN-000327

PATIENT
  Age: 86 Year
  Sex: Male
  Weight: 65 kg

DRUGS (3)
  1. BICALUTAMIDE [Suspect]
     Active Substance: BICALUTAMIDE
     Indication: Prostate cancer
     Dosage: 50 MG DAILY
     Route: 048
     Dates: start: 20180903, end: 20220920
  2. SODIUM CHLORIDE [Concomitant]
     Active Substance: SODIUM CHLORIDE
     Dosage: 100 ML TID
     Route: 042
     Dates: start: 20220915, end: 20220927
  3. PIPERACILLIN AND TAZOBACTAM [Concomitant]
     Active Substance: PIPERACILLIN SODIUM\TAZOBACTAM SODIUM
     Dosage: 4.5 G TID
     Route: 042
     Dates: start: 20220915, end: 20220927

REACTIONS (3)
  - Upper gastrointestinal haemorrhage [Recovering/Resolving]
  - Hepatic function abnormal [Recovering/Resolving]
  - Sepsis [Unknown]

NARRATIVE: CASE EVENT DATE: 20220915
